FAERS Safety Report 12216995 (Version 1)
Quarter: 2016Q1

REPORT INFORMATION
  Report Type: Report from Study
  Country: BR (occurrence: BR)
  Receive Date: 20160329
  Receipt Date: 20160329
  Transmission Date: 20160526
  Serious: Yes (Other)
  Sender: FDA-Public Use
  Company Number: PHHY2016BR040648

PATIENT
  Sex: Female
  Weight: 161 kg

DRUGS (1)
  1. FORASEQ [Suspect]
     Active Substance: BUDESONIDE\FORMOTEROL FUMARATE
     Indication: ASTHMA
     Dosage: 1 DF, BID (12/200 MCG, TWICE A DAY)
     Route: 055

REACTIONS (7)
  - Cough [Unknown]
  - Drowning [Unknown]
  - Asthma [Unknown]
  - Emotional disorder [Unknown]
  - Visual impairment [Unknown]
  - Dyspnoea [Unknown]
  - Choking [Unknown]
